FAERS Safety Report 9422729 (Version 1)
Quarter: 2013Q3

REPORT INFORMATION
  Report Type: Report from Study
  Country: JP (occurrence: JP)
  Receive Date: 20130726
  Receipt Date: 20130726
  Transmission Date: 20140515
  Serious: Yes (Hospitalization, Other)
  Sender: FDA-Public Use
  Company Number: JP-TEVA-2011004172

PATIENT
  Age: 51 Year
  Sex: Male
  Weight: 76.3 kg

DRUGS (15)
  1. BENDAMUSTINE HCL [Suspect]
     Indication: B-CELL LYMPHOMA
     Route: 042
     Dates: start: 20110504, end: 20110505
  2. BENDAMUSTINE HCL [Suspect]
     Route: 042
     Dates: start: 20110531, end: 20110601
  3. BENDAMUSTINE HCL [Suspect]
     Route: 042
     Dates: start: 20110623, end: 20110624
  4. BENDAMUSTINE HCL [Suspect]
     Route: 042
     Dates: start: 20110714, end: 20110715
  5. BENDAMUSTINE HCL [Suspect]
     Route: 042
     Dates: start: 20110804, end: 20110805
  6. BENDAMUSTINE HCL [Suspect]
     Route: 042
     Dates: start: 20110825, end: 20110826
  7. BENDAMUSTINE HCL [Suspect]
     Route: 042
     Dates: start: 20110927, end: 20110928
  8. ALLOPURINOL [Concomitant]
     Dates: end: 20110518
  9. FLUCONAZOLE [Concomitant]
  10. FAMOTIDINE [Concomitant]
     Dates: end: 20110518
  11. LEVOFLOXACIN [Concomitant]
     Dates: end: 20110518
  12. RITUXIMAB [Concomitant]
     Indication: B-CELL LYMPHOMA
     Dosage: 620 MILLIGRAM DAILY;
     Dates: start: 20120530
  13. SULFAMETHOXAZOLE [Concomitant]
     Indication: PROPHYLAXIS
     Dosage: 1 GRAM DAILY;
     Dates: start: 20110527
  14. RABEPRAZOLE SODIUM [Concomitant]
     Indication: PROPHYLAXIS
     Dates: start: 20110523
  15. CEFDINIR [Concomitant]
     Indication: PROPHYLAXIS
     Dates: start: 20110523

REACTIONS (8)
  - Rash [Recovered/Resolved]
  - Lymphopenia [Recovered/Resolved]
  - Lymphocyte count decreased [Recovered/Resolved]
  - Liver disorder [Recovered/Resolved]
  - C-reactive protein increased [Recovered/Resolved]
  - Blood lactate dehydrogenase increased [Recovered/Resolved]
  - Nausea [Recovered/Resolved]
  - Herpes zoster [Recovering/Resolving]
